FAERS Safety Report 19037903 (Version 1)
Quarter: 2021Q1

REPORT INFORMATION
  Report Type: Spontaneous
  Country: US (occurrence: US)
  Receive Date: 20210322
  Receipt Date: 20210322
  Transmission Date: 20210420
  Serious: No
  Sender: FDA-Public Use
  Company Number: US-BAUSCH-BL-2021-008873

PATIENT
  Sex: Female

DRUGS (2)
  1. PIMECROLIMUS CREAM [Suspect]
     Active Substance: PIMECROLIMUS
     Indication: PRODUCT USE IN UNAPPROVED INDICATION
  2. PIMECROLIMUS CREAM [Suspect]
     Active Substance: PIMECROLIMUS
     Indication: ROSACEA
     Route: 061

REACTIONS (5)
  - Product prescribing error [Unknown]
  - Application site rash [Recovering/Resolving]
  - Product use in unapproved indication [Unknown]
  - Headache [Recovered/Resolved]
  - Application site erythema [Unknown]
